FAERS Safety Report 6355254-1 (Version None)
Quarter: 2009Q3

REPORT INFORMATION
  Report Type: 
  Country: None (occurrence: None)
  Receive Date: 20090914
  Receipt Date: 20090903
  Transmission Date: 20100115
  Serious: Yes (Death, Hospitalization, Other)
  Sender: FDA-Public Use
  Company Number: GB-ROCHE-107096

PATIENT
  Sex: Male
  Weight: 100 kg

DRUGS (7)
  1. ROACCUTANE [Suspect]
     Indication: ACNE
     Route: 048
     Dates: start: 19851101
  2. WARFARIN SODIUM [Concomitant]
  3. AZATHIOPRINE [Concomitant]
  4. PREDNISOLONE [Concomitant]
  5. CALCICHEW [Concomitant]
  6. OMEPRAZOLE [Concomitant]
  7. DICLOFENAC SODIUM [Concomitant]

REACTIONS (45)
  - ANXIETY [None]
  - ARTERITIS [None]
  - BLINDNESS [None]
  - CELLULITIS [None]
  - COLITIS ULCERATIVE [None]
  - CONFUSIONAL STATE [None]
  - CONVERSION DISORDER [None]
  - DERMAL CYST [None]
  - DIARRHOEA [None]
  - DRUG INEFFECTIVE [None]
  - FEAR [None]
  - GANGRENE [None]
  - GASTROOESOPHAGEAL REFLUX DISEASE [None]
  - HAEMATURIA [None]
  - HEADACHE [None]
  - HYPERCOAGULATION [None]
  - INSOMNIA [None]
  - IRRITABILITY [None]
  - LIP DRY [None]
  - MENTAL DISORDER [None]
  - MYOCARDIAL ISCHAEMIA [None]
  - NON-CARDIAC CHEST PAIN [None]
  - PAIN IN EXTREMITY [None]
  - PANCREATIC CARCINOMA METASTATIC [None]
  - PERSONALITY CHANGE [None]
  - PHARYNGITIS [None]
  - PREMATURE EJACULATION [None]
  - PROTEIN TOTAL INCREASED [None]
  - PROTEINURIA [None]
  - PSORIASIS [None]
  - SEPSIS [None]
  - SINUS ARRHYTHMIA [None]
  - SPERM COUNT DECREASED [None]
  - STASIS DERMATITIS [None]
  - TESTICULAR SWELLING [None]
  - THROMBOPHLEBITIS [None]
  - THROMBOSIS [None]
  - TOOTH EXTRACTION [None]
  - VASCULITIS [None]
  - VENOUS INSUFFICIENCY [None]
  - VENOUS THROMBOSIS [None]
  - VESICOURETERIC REFLUX [None]
  - VIRAL INFECTION [None]
  - VOMITING [None]
  - WEIGHT DECREASED [None]
